FAERS Safety Report 8057424-3 (Version None)
Quarter: 2012Q1

REPORT INFORMATION
  Report Type: 
  Country: None (occurrence: None)
  Receive Date: 20120119
  Receipt Date: 20120110
  Transmission Date: 20120608
  Serious: Yes (Other)
  Sender: FDA-Public Use
  Company Number: US-ASTRAZENECA-2010SE51509

PATIENT
  Age: 54 Year
  Sex: Female

DRUGS (1)
  1. SEROQUEL [Suspect]
     Dosage: 100 MG ONE TABLET AND HALF TABLET BID
     Route: 048

REACTIONS (6)
  - VISUAL IMPAIRMENT [None]
  - THINKING ABNORMAL [None]
  - CEREBROVASCULAR ACCIDENT [None]
  - MALAISE [None]
  - DRUG DOSE OMISSION [None]
  - DYSGRAPHIA [None]
